FAERS Safety Report 6173223-1 (Version None)
Quarter: 2009Q2

REPORT INFORMATION
  Report Type: 
  Country: None (occurrence: None)
  Receive Date: 20090430
  Receipt Date: 20090424
  Transmission Date: 20091009
  Serious: Yes (Death, Hospitalization)
  Sender: FDA-Public Use
  Company Number: US-BAYER-200919331GPV

PATIENT
  Age: 31 Year
  Sex: Female

DRUGS (1)
  1. ACETYLSALICYLIC ACID [Suspect]
     Indication: DRUG USE FOR UNKNOWN INDICATION
     Dosage: UNIT DOSE: 300 MG
     Route: 048
     Dates: start: 19550701

REACTIONS (7)
  - BRAIN INJURY [None]
  - GASTROINTESTINAL NECROSIS [None]
  - HAEMORRHAGE [None]
  - HEPATIC NECROSIS [None]
  - HYPONATRAEMIA [None]
  - RENAL FAILURE [None]
  - THERAPEUTIC AGENT TOXICITY [None]
